FAERS Safety Report 19262785 (Version 1)
Quarter: 2021Q2

REPORT INFORMATION
  Report Type: Spontaneous
  Country: BR (occurrence: BR)
  Receive Date: 20210517
  Receipt Date: 20210517
  Transmission Date: 20210717
  Serious: Yes (Hospitalization, Other)
  Sender: FDA-Public Use
  Company Number: BR-NOVOPROD-811202

PATIENT
  Age: 42 Year
  Sex: Male

DRUGS (2)
  1. INSULIN GLULISINE [Concomitant]
     Active Substance: INSULIN GLULISINE
     Dosage: UNK
     Route: 065
  2. TRESIBA [Suspect]
     Active Substance: INSULIN DEGLUDEC
     Indication: PRODUCT USED FOR UNKNOWN INDICATION
     Dosage: UNK
     Route: 065
     Dates: start: 201609

REACTIONS (5)
  - Hypertension [Unknown]
  - Road traffic accident [Unknown]
  - Pneumothorax [Unknown]
  - Ill-defined disorder [Unknown]
  - Cerebrovascular arteriovenous malformation [Unknown]

NARRATIVE: CASE EVENT DATE: 2018
